FAERS Safety Report 4970017-7 (Version None)
Quarter: 2006Q2

REPORT INFORMATION
  Report Type: 
  Country: None (occurrence: None)
  Receive Date: 20060412
  Receipt Date: 20060331
  Transmission Date: 20061013
  Serious: Yes (Other)
  Sender: FDA-Public Use
  Company Number: CA-JNJFOC-20060400179

PATIENT
  Sex: Female
  Weight: 63.5 kg

DRUGS (10)
  1. REMICADE [Suspect]
     Route: 042
  2. REMICADE [Suspect]
     Route: 042
  3. REMICADE [Suspect]
     Indication: CROHN'S DISEASE
     Route: 042
  4. PLAVIX [Concomitant]
     Route: 048
  5. ALTACE [Concomitant]
     Route: 048
  6. PRO-BACLAC [Concomitant]
     Route: 048
  7. APO-CAL [Concomitant]
     Route: 048
  8. VITAMIN B-12 [Concomitant]
     Route: 030
  9. SOLU-CORTEF [Concomitant]
     Indication: PREMEDICATION
     Route: 042
  10. FOSAMAX [Concomitant]

REACTIONS (6)
  - CHEST DISCOMFORT [None]
  - ERYTHEMA [None]
  - INFUSION RELATED REACTION [None]
  - NAUSEA [None]
  - OXYGEN SATURATION ABNORMAL [None]
  - PRURITUS [None]
